FAERS Safety Report 7544200-0 (Version None)
Quarter: 2011Q2

REPORT INFORMATION
  Report Type: 
  Country: None (occurrence: None)
  Receive Date: 20110613
  Receipt Date: 20061018
  Transmission Date: 20111010
  Serious: Yes (Other)
  Sender: FDA-Public Use
  Company Number: PHHO2006CL17354

PATIENT
  Age: 75 Year
  Sex: Female

DRUGS (2)
  1. VALSARTAN  AND HYDROCHLOROTHIAZIDE [Suspect]
     Dosage: 1 UNK, QD
     Route: 048
  2. TRILEPTAL [Concomitant]

REACTIONS (1)
  - CEREBRAL HAEMORRHAGE [None]
